FAERS Safety Report 22366804 (Version 2)
Quarter: 2023Q2

REPORT INFORMATION
  Report Type: Spontaneous
  Country: IT (occurrence: IT)
  Receive Date: 20230525
  Receipt Date: 20230606
  Transmission Date: 20230721
  Serious: Yes (Other)
  Sender: FDA-Public Use
  Company Number: IT-002147023-NVSC2023IT115681

PATIENT
  Sex: Female

DRUGS (6)
  1. CANAKINUMAB [Suspect]
     Active Substance: CANAKINUMAB
     Indication: Lung disorder
     Dosage: 150 MG, Q4W(10 MG/KG)
     Route: 065
     Dates: start: 20210204
  2. CANAKINUMAB [Suspect]
     Active Substance: CANAKINUMAB
     Indication: Haemophagocytic lymphohistiocytosis
  3. MYCOPHENOLATE MOFETIL [Suspect]
     Active Substance: MYCOPHENOLATE MOFETIL
     Indication: Lung disorder
     Dosage: 600 MG/M2
     Route: 065
     Dates: start: 20210127
  4. MYCOPHENOLATE MOFETIL [Suspect]
     Active Substance: MYCOPHENOLATE MOFETIL
     Indication: Haemophagocytic lymphohistiocytosis
  5. PREDNISONE [Suspect]
     Active Substance: PREDNISONE
     Indication: Lung disorder
     Dosage: 0.3 MG/KG
     Route: 065
  6. PREDNISONE [Suspect]
     Active Substance: PREDNISONE
     Indication: Macrophage activation

REACTIONS (4)
  - Lung disorder [Unknown]
  - Inflammation [Unknown]
  - Product use in unapproved indication [Unknown]
  - Drug ineffective [Unknown]

NARRATIVE: CASE EVENT DATE: 20230225
